FAERS Safety Report 7395076-6 (Version None)
Quarter: 2011Q1

REPORT INFORMATION
  Report Type: 
  Country: None (occurrence: None)
  Receive Date: 20110331
  Receipt Date: 20110331
  Transmission Date: 20110831
  Serious: Yes (Life-Threatening, Hospitalization)
  Sender: FDA-Public Use
  Company Number: None

PATIENT
  Sex: Female

DRUGS (12)
  1. TIVOZANIB (AV-951) [Suspect]
     Indication: COLORECTAL CANCER
     Dosage: 1.0 MG QD PO
     Route: 048
     Dates: start: 20110310, end: 20110328
  2. PROTONIX [Concomitant]
  3. EVEROLIMUS (RAD001) [Suspect]
     Indication: COLORECTAL CANCER
     Dosage: 10.0 MG QD PO
     Route: 048
     Dates: start: 20110310, end: 20110328
  4. LEVOTHYROXINE SODIUM [Concomitant]
  5. ATENOLOL [Concomitant]
  6. MIRALAX [Concomitant]
  7. ZOLPIDEM TARTRATE [Concomitant]
  8. HYOSCYAMINE [Concomitant]
  9. ONDANETRON HCL [Concomitant]
  10. OXYCODONE [Concomitant]
  11. SPIRONOLACTONE [Concomitant]
  12. NAPROXEN [Concomitant]

REACTIONS (2)
  - EPISTAXIS [None]
  - THROMBOCYTOPENIA [None]
